FAERS Safety Report 8821897 (Version 1)
Quarter: 2012Q4

REPORT INFORMATION
  Report Type: 
  Country: US (occurrence: US)
  Receive Date: 20121002
  Receipt Date: 20121002
  Transmission Date: 20130627
  Serious: Yes (Hospitalization)
  Sender: FDA-Public Use
  Company Number: US-009507513-1210USA000460

PATIENT
  Age: 75 Year
  Sex: Male

DRUGS (1)
  1. JANUVIA [Suspect]
     Dosage: 10 mg, qd
     Route: 048

REACTIONS (3)
  - Dysstasia [Unknown]
  - Nausea [Unknown]
  - Dizziness [Unknown]
